FAERS Safety Report 21252399 (Version 1)
Quarter: 2022Q3

REPORT INFORMATION
  Report Type: Spontaneous
  Country: US (occurrence: US)
  Receive Date: 20220825
  Receipt Date: 20220825
  Transmission Date: 20221027
  Serious: Yes (Other)
  Sender: FDA-Public Use
  Company Number: US-CELLTRION INC.-2022US013923

PATIENT

DRUGS (3)
  1. TRUXIMA [Suspect]
     Active Substance: RITUXIMAB-ABBS
     Indication: Pemphigoid
     Dosage: 375 MG Q 3 WEEKS
     Dates: start: 20220628
  2. TRUXIMA [Suspect]
     Active Substance: RITUXIMAB-ABBS
     Dosage: 75 MG Q 3 WEEKS
     Dates: start: 20220719
  3. TRUXIMA [Suspect]
     Active Substance: RITUXIMAB-ABBS
     Dosage: 375 MG Q 3 WEEKS
     Dates: start: 20220805

REACTIONS (2)
  - Pemphigoid [Unknown]
  - Off label use [Unknown]
